FAERS Safety Report 8438989-6 (Version None)
Quarter: 2012Q2

REPORT INFORMATION
  Report Type: 
  Country: None (occurrence: None)
  Receive Date: 20120615
  Receipt Date: 20120608
  Transmission Date: 20120825
  Serious: Yes (Other)
  Sender: FDA-Public Use
  Company Number: US-PFIZER INC-2009314355

PATIENT

DRUGS (1)
  1. DILANTIN KAPSEAL [Suspect]
     Dosage: 100 MG, 3X/DAY
     Dates: start: 20030724

REACTIONS (1)
  - STEVENS-JOHNSON SYNDROME [None]
